FAERS Safety Report 22254042 (Version 3)
Quarter: 2023Q4

REPORT INFORMATION
  Report Type: Spontaneous
  Country: US (occurrence: US)
  Receive Date: 20230426
  Receipt Date: 20231111
  Transmission Date: 20240110
  Serious: No
  Sender: FDA-Public Use
  Company Number: US-SA-SAC20230425001708

PATIENT
  Age: 61 Year
  Sex: Female

DRUGS (1)
  1. KEVZARA [Suspect]
     Active Substance: SARILUMAB
     Indication: Rheumatoid arthritis
     Dosage: 200MG, QOW
     Route: 058
     Dates: start: 20230404

REACTIONS (3)
  - Pain [Unknown]
  - Contusion [Unknown]
  - Blood cholesterol increased [Unknown]

NARRATIVE: CASE EVENT DATE: 20230101
